FAERS Safety Report 19153999 (Version 4)
Quarter: 2021Q2

REPORT INFORMATION
  Report Type: Report from Study
  Country: JP (occurrence: JP)
  Receive Date: 20210419
  Receipt Date: 20210621
  Transmission Date: 20210717
  Serious: Yes (Life-Threatening)
  Sender: FDA-Public Use
  Company Number: JP-CELGENEUS-JPN-20210403656

PATIENT
  Age: 57 Year
  Sex: Male
  Weight: 68.4 kg

DRUGS (40)
  1. LUNESTA [Concomitant]
     Active Substance: ESZOPICLONE
     Indication: INSOMNIA
     Dosage: 1 MILLIGRAM
     Route: 048
  2. ACICLOVIR [Concomitant]
     Active Substance: ACYCLOVIR
     Indication: ANTIVIRAL PROPHYLAXIS
     Dosage: 1600 MILLIGRAM
     Route: 048
  3. ALLOPURINOL. [Concomitant]
     Active Substance: ALLOPURINOL
     Indication: HYPERURICAEMIA
     Dosage: 700 MILLIGRAM
     Route: 048
     Dates: start: 20210217, end: 20210217
  4. CALONAL [Concomitant]
     Active Substance: ACETAMINOPHEN
     Indication: PYREXIA
     Route: 048
     Dates: start: 20210301, end: 20210301
  5. PREDNISOLONE. [Concomitant]
     Active Substance: PREDNISOLONE
     Indication: IMMUNISATION REACTION
     Dosage: UNKNOWN
     Route: 065
     Dates: start: 20201008, end: 20210107
  6. PREDNISOLONE. [Concomitant]
     Active Substance: PREDNISOLONE
     Indication: PROPHYLAXIS AGAINST GRAFT VERSUS HOST DISEASE
     Dosage: 7.5 MILLIGRAM
     Route: 048
     Dates: start: 20210312, end: 20210314
  7. PROGRAF [Concomitant]
     Active Substance: TACROLIMUS
     Indication: GRAFT VERSUS HOST DISEASE IN SKIN
     Dosage: 0.8 MILLIGRAM
     Route: 048
     Dates: start: 20210309, end: 20210311
  8. TRAZENTA [Concomitant]
     Active Substance: LINAGLIPTIN
     Indication: TYPE 2 DIABETES MELLITUS
     Dosage: 5 MILLIGRAM
     Route: 048
  9. PREVYMIS [Concomitant]
     Active Substance: LETERMOVIR
     Indication: ANTIVIRAL PROPHYLAXIS
     Dosage: 480 MILLIGRAM
     Route: 048
  10. MIYA?BM [Concomitant]
     Active Substance: CLOSTRIDIUM BUTYRICUM SPORES STRAIN M-55
     Indication: DYSBIOSIS
     Dosage: 3 GRAM
     Route: 048
     Dates: end: 20210414
  11. PREDNISOLONE. [Concomitant]
     Active Substance: PREDNISOLONE
     Dosage: 2.5 MILLIGRAM
     Route: 048
     Dates: start: 20210325, end: 20210404
  12. PREDNISOLONE. [Concomitant]
     Active Substance: PREDNISOLONE
     Dosage: 20 MILLIGRAM
     Route: 048
     Dates: start: 20210423
  13. PROGRAF [Concomitant]
     Active Substance: TACROLIMUS
     Dosage: 2 MILLIGRAM
     Route: 041
     Dates: start: 20210416, end: 20210419
  14. PROGRAF [Concomitant]
     Active Substance: TACROLIMUS
     Dosage: 6 MILLIGRAM
     Route: 048
     Dates: start: 20210420
  15. NOVORAPID [Concomitant]
     Active Substance: INSULIN ASPART
     Indication: TYPE 2 DIABETES MELLITUS
     Dosage: AS MUCH AS SUFFICES
     Route: 058
  16. TRESIBA [Concomitant]
     Active Substance: INSULIN DEGLUDEC
     Indication: TYPE 2 DIABETES MELLITUS
     Dosage: AS MUCH AS SUFFICES
     Route: 058
  17. REVLIMID [Suspect]
     Active Substance: LENALIDOMIDE
     Indication: ADULT T-CELL LYMPHOMA/LEUKAEMIA
     Route: 048
     Dates: start: 20210312, end: 202103
  18. ROSUVASTATIN. [Concomitant]
     Active Substance: ROSUVASTATIN
     Indication: DYSLIPIDAEMIA
     Dosage: 2.5 MILLIGRAM
     Route: 048
  19. ACTOS [Concomitant]
     Active Substance: PIOGLITAZONE HYDROCHLORIDE
     Indication: TYPE 2 DIABETES MELLITUS
     Dosage: 15 MILLIGRAM
     Route: 048
  20. ARGAMATE [Concomitant]
     Active Substance: CALCIUM POLYSTYRENE SULFONATE
     Indication: HYPERKALAEMIA
     Dosage: 1 DOSAGE FORMS
     Route: 048
     Dates: end: 20210216
  21. AZUNOL [Concomitant]
     Indication: INFECTION PROPHYLAXIS
     Dosage: 4?6 MG
     Route: 061
  22. PROGRAF [Concomitant]
     Active Substance: TACROLIMUS
     Indication: IMMUNISATION REACTION
     Dosage: 4 MILLIGRAM
     Route: 048
     Dates: start: 20210309, end: 20210331
  23. NEUTROGIN [Concomitant]
     Active Substance: LENOGRASTIM
     Indication: NEUTROPHIL COUNT DECREASED
     Dosage: 350 MICROGRAM
     Route: 041
     Dates: end: 20210221
  24. REVLIMID [Suspect]
     Active Substance: LENALIDOMIDE
     Route: 048
     Dates: start: 20210325, end: 20210414
  25. BISOPROLOL FUMARATE. [Concomitant]
     Active Substance: BISOPROLOL FUMARATE
     Indication: HYPERTENSION
     Dosage: .625 MILLIGRAM
     Route: 048
  26. URSODEOXYCHOLIC ACID [Concomitant]
     Active Substance: URSODIOL
     Indication: HEPATIC FUNCTION ABNORMAL
     Dosage: 600 MILLIGRAM
     Route: 048
  27. GENINAX [Concomitant]
     Active Substance: GARENOXACIN MESYLATE
     Indication: INFECTION PROPHYLAXIS
     Dosage: 400 MILLIGRAM
     Route: 048
     Dates: start: 20210219, end: 20210225
  28. CAMSHIA COMBINATION HD [Concomitant]
     Indication: HYPERTENSION
     Dosage: 1 TABLET
     Route: 048
  29. VOGLIBOSE [Concomitant]
     Active Substance: VOGLIBOSE
     Indication: TYPE 2 DIABETES MELLITUS
     Dosage: .9 MILLIGRAM
     Route: 048
  30. PREDNISOLONE. [Concomitant]
     Active Substance: PREDNISOLONE
     Indication: GRAFT VERSUS HOST DISEASE IN SKIN
     Dosage: 25 MILLIGRAM
     Route: 048
     Dates: start: 20210301, end: 20210308
  31. PREDNISOLONE. [Concomitant]
     Active Substance: PREDNISOLONE
     Indication: ADULT T-CELL LYMPHOMA/LEUKAEMIA
     Dosage: MORNING 10MG, AFTERNOON 5 MG
     Route: 048
     Dates: start: 20210309, end: 20210311
  32. PREDNISOLONE. [Concomitant]
     Active Substance: PREDNISOLONE
     Dosage: 15 MILLIGRAM
     Route: 048
     Dates: start: 20210414, end: 20210415
  33. FEBURIC [Concomitant]
     Active Substance: FEBUXOSTAT
     Indication: HYPERURICAEMIA
     Dosage: 1 TABLET
     Route: 048
     Dates: end: 20210318
  34. PREDNISOLONE. [Concomitant]
     Active Substance: PREDNISOLONE
     Dosage: 5 MILLIGRAM
     Route: 048
     Dates: start: 20210315, end: 20210324
  35. PREDNISOLONE. [Concomitant]
     Active Substance: PREDNISOLONE
     Dosage: 2 MILLIGRAM
     Route: 048
     Dates: start: 20210405, end: 20210413
  36. PROGRAF [Concomitant]
     Active Substance: TACROLIMUS
     Indication: PROPHYLAXIS AGAINST GRAFT VERSUS HOST DISEASE
     Dosage: 0.36 MILLIGRAM
     Route: 041
     Dates: end: 20210308
  37. MAXIPIME [Concomitant]
     Active Substance: CEFEPIME HYDROCHLORIDE
     Indication: INFECTION PROPHYLAXIS
     Dosage: 4 GRAM
     Route: 041
     Dates: end: 20210218
  38. NOXAFIL [Concomitant]
     Active Substance: POSACONAZOLE
     Indication: INFECTION PROPHYLAXIS
     Dosage: 300 MILLIGRAM
     Route: 048
  39. BAYASPIRIN [Concomitant]
     Active Substance: ASPIRIN
     Indication: THROMBOSIS PROPHYLAXIS
     Dosage: 100 MILLIGRAM
     Route: 048
     Dates: start: 20210311, end: 20210419
  40. PREDNISOLONE. [Concomitant]
     Active Substance: PREDNISOLONE
     Dosage: 40 MILLIGRAM
     Route: 048
     Dates: start: 20210420, end: 20210422

REACTIONS (1)
  - Graft versus host disease in skin [Recovered/Resolved]

NARRATIVE: CASE EVENT DATE: 20210415
